FAERS Safety Report 6571330-2 (Version None)
Quarter: 2010Q1

REPORT INFORMATION
  Report Type: 
  Country: None (occurrence: None)
  Receive Date: 20100205
  Receipt Date: 20100128
  Transmission Date: 20100710
  Serious: Yes (Hospitalization)
  Sender: FDA-Public Use
  Company Number: US-BRISTOL-MYERS SQUIBB COMPANY-14956908

PATIENT
  Age: 65 Year
  Sex: Male

DRUGS (9)
  1. ONGLYZA [Suspect]
     Indication: DIABETES MELLITUS
  2. LISINOPRIL [Suspect]
  3. ASPIRIN [Concomitant]
  4. GLIPIZIDE [Concomitant]
  5. FLEXERIL [Concomitant]
  6. ACTOS [Concomitant]
  7. LOPRESSOR [Concomitant]
  8. PREVACID [Concomitant]
  9. LYRICA [Concomitant]

REACTIONS (1)
  - PANCREATITIS ACUTE [None]
